FAERS Safety Report 25494435 (Version 1)
Quarter: 2025Q2

REPORT INFORMATION
  Report Type: Spontaneous
  Country: US (occurrence: US)
  Receive Date: 20250630
  Receipt Date: 20250630
  Transmission Date: 20250716
  Serious: No
  Sender: TORRENT PHARMA INC.
  Company Number: US-TORRENT-00014386

PATIENT
  Sex: Male

DRUGS (1)
  1. VENXXIVA [Suspect]
     Active Substance: TIOPRONIN
     Indication: Cystinuria
     Dosage: VENXXIVA 300MG - 1 TABLET BY MOUTH TWICE DAILY
     Route: 048
     Dates: start: 20250515

REACTIONS (1)
  - Urticaria [Recovered/Resolved]

NARRATIVE: CASE EVENT DATE: 20250607
